FAERS Safety Report 3127365 (Version 1)
Quarter: 2020Q3

REPORT INFORMATION
  Report Type: Spontaneous
  Country: AU (occurrence: None)
  Receive Date: 19980626
  Receipt Date: 19980626
  Transmission Date: 20201104
  Serious: Yes (Hospitalization)
  Sender: FDA-Public Use
  Company Number: R034408

PATIENT
  Age: 36 Year
  Sex: Male

DRUGS (6)
  1. PROPOFOL. [Suspect]
     Active Substance: PROPOFOL
     Indication: INDUCTION OF ANAESTHESIA
     Dates: start: 19980605, end: 19980605
  2. MIVACURIUM HYDROXIDE [Suspect]
     Active Substance: MIVACURIUM HYDROXIDE
     Indication: INDUCTION OF ANAESTHESIA
     Dates: start: 19980605, end: 19980605
  3. MORPHINE [Suspect]
     Active Substance: MORPHINE
     Indication: INDUCTION OF ANAESTHESIA
     Dates: start: 19980605, end: 19980605
  4. MIDAZOLAM HYDROCHLORIDE. [Suspect]
     Active Substance: MIDAZOLAM HYDROCHLORIDE
     Indication: INDUCTION OF ANAESTHESIA
     Dates: start: 19980605, end: 19980605
  5. OMAPATRILAT. [Suspect]
     Active Substance: OMAPATRILAT
     Indication: HYPERTENSION
     Dosage: QD ORAL
     Route: 048
     Dates: start: 19980429
  6. PLACEBO [Suspect]
     Active Substance: UNSPECIFIED INGREDIENT
     Indication: HYPERTENSION
     Dosage: QD ORAL
     Route: 048
     Dates: start: 19980429

REACTIONS (2)
  - Tendon injury [None]
  - Hypotension [None]

NARRATIVE: CASE EVENT DATE: 19980605
